FAERS Safety Report 19371147 (Version 2)
Quarter: 2021Q2

REPORT INFORMATION
  Report Type: Report from Study
  Country: KR (occurrence: KR)
  Receive Date: 20210604
  Receipt Date: 20210610
  Transmission Date: 20210717
  Serious: Yes (Other)
  Sender: FDA-Public Use
  Company Number: KR-AMGEN INC.-KORCT2021083828

PATIENT
  Age: 58 Year
  Sex: Female

DRUGS (96)
  1. ATROPINE. [Concomitant]
     Active Substance: ATROPINE
     Dosage: 0.5 MILLIGRAM
     Dates: start: 20180823, end: 20180823
  2. CIMETIDINE [Concomitant]
     Active Substance: CIMETIDINE
     Indication: PRODUCT USED FOR UNKNOWN INDICATION
     Dosage: 200 MILLIGRAM
     Dates: start: 20180516, end: 20180516
  3. DEXAMETHASONE. [Concomitant]
     Active Substance: DEXAMETHASONE
     Indication: PRODUCT USED FOR UNKNOWN INDICATION
     Dosage: 10 MILLIGRAM
     Route: 065
     Dates: start: 20180516, end: 20180516
  4. DEXAMETHASONE. [Concomitant]
     Active Substance: DEXAMETHASONE
     Dosage: 12 MILLIGRAM
     Route: 065
     Dates: start: 20180607, end: 20180607
  5. FAT EMULSION NOS [Concomitant]
     Active Substance: EGG PHOSPHOLIPIDS\SAFFLOWER OIL\SOYBEAN OIL
     Indication: PRODUCT USED FOR UNKNOWN INDICATION
     Dosage: 500 UNK
     Dates: start: 20180707, end: 20180708
  6. FLUOROURACIL. [Concomitant]
     Active Substance: FLUOROURACIL
     Dosage: 1680 MILLIGRAM
     Route: 065
     Dates: start: 20180907
  7. HYDROCORTISONE. [Concomitant]
     Active Substance: HYDROCORTISONE
     Dosage: 100 MILLIGRAM
     Route: 065
     Dates: start: 20180607, end: 20180607
  8. HYDROCORTISONE. [Concomitant]
     Active Substance: HYDROCORTISONE
     Dosage: 100 MILLIGRAM
     Route: 065
     Dates: start: 20180721, end: 20180721
  9. MANIDIPINE [Concomitant]
     Active Substance: MANIDIPINE
     Indication: PRODUCT USED FOR UNKNOWN INDICATION
     Dosage: 20 MILLIGRAM
     Route: 065
     Dates: start: 20180516
  10. TRAMADOL. [Concomitant]
     Active Substance: TRAMADOL
     Indication: PRODUCT USED FOR UNKNOWN INDICATION
     Dosage: 50 MILLIGRAM
     Route: 065
     Dates: start: 20180622, end: 20180622
  11. AFLIBERCEPT [Concomitant]
     Active Substance: AFLIBERCEPT
     Dosage: 235.6 MILLIGRAM
     Dates: start: 20180907
  12. APREPITANT. [Concomitant]
     Active Substance: APREPITANT
     Dosage: 150 MILLIGRAM
     Dates: start: 20180823, end: 20180823
  13. CALCIUM FOLINATE [Concomitant]
     Active Substance: LEUCOVORIN CALCIUM
     Dosage: 200 MILLIGRAM
     Dates: start: 20180706
  14. CHLORPHENAMINE [Concomitant]
     Active Substance: CHLORPHENIRAMINE MALEATE
     Dosage: 4 MILLIGRAM
     Route: 065
     Dates: start: 20180607, end: 20180607
  15. CHLORPHENAMINE [Concomitant]
     Active Substance: CHLORPHENIRAMINE MALEATE
     Dosage: 4 MILLIGRAM
     Route: 065
     Dates: start: 20180721, end: 20180721
  16. FAMOTIDINE. [Concomitant]
     Active Substance: FAMOTIDINE
     Indication: PRODUCT USED FOR UNKNOWN INDICATION
     Dosage: 20 MILLIGRAM
     Route: 065
     Dates: start: 20180607, end: 20180607
  17. FAMOTIDINE. [Concomitant]
     Active Substance: FAMOTIDINE
     Dosage: 20 MILLIGRAM
     Route: 065
     Dates: start: 20180907, end: 20180907
  18. FLUOROURACIL. [Concomitant]
     Active Substance: FLUOROURACIL
     Dosage: 1920 MILLIGRAM
     Route: 065
     Dates: start: 20180621
  19. KETOPROFEN. [Concomitant]
     Active Substance: KETOPROFEN
     Dosage: 1 UNK
     Route: 065
     Dates: start: 20180706, end: 20180717
  20. PETHIDINE [Concomitant]
     Active Substance: MEPERIDINE
     Indication: PRODUCT USED FOR UNKNOWN INDICATION
     Dosage: 25 MILLIGRAM
     Route: 065
     Dates: start: 20180808, end: 20180808
  21. AFLIBERCEPT [Concomitant]
     Active Substance: AFLIBERCEPT
     Dosage: 236 UNK
     Dates: start: 20180807
  22. ATROPINE. [Concomitant]
     Active Substance: ATROPINE
     Dosage: 0.5 MILLIGRAM
     Dates: start: 20180721, end: 20180721
  23. BENZYDAMINE [Concomitant]
     Active Substance: BENZYDAMINE
     Indication: PRODUCT USED FOR UNKNOWN INDICATION
     Dosage: UNK
     Dates: start: 20180622
  24. CALCIUM FOLINATE [Concomitant]
     Active Substance: LEUCOVORIN CALCIUM
     Dosage: 200 MILLIGRAM
     Dates: start: 20180621
  25. HYDROCORTISONE. [Concomitant]
     Active Substance: HYDROCORTISONE
     Dosage: 100 MILLIGRAM
     Route: 065
     Dates: start: 20180621, end: 20180621
  26. IRINOTECAN [Concomitant]
     Active Substance: IRINOTECAN
     Indication: PRODUCT USED FOR UNKNOWN INDICATION
     Dosage: 144 MILLIGRAM
     Route: 065
     Dates: start: 20180607
  27. KETOPROFEN. [Concomitant]
     Active Substance: KETOPROFEN
     Indication: PRODUCT USED FOR UNKNOWN INDICATION
     Dosage: 1 UNK
     Route: 065
     Dates: start: 20180516, end: 20180522
  28. LACTULOSE. [Concomitant]
     Active Substance: LACTULOSE
     Indication: PRODUCT USED FOR UNKNOWN INDICATION
     Dosage: 45 UNK
     Route: 065
     Dates: start: 20180518, end: 20180524
  29. POLAPREZINC [Concomitant]
     Active Substance: POLAPREZINC
     Indication: PRODUCT USED FOR UNKNOWN INDICATION
     Dosage: 150 MILLIGRAM
     Route: 065
     Dates: start: 20180516
  30. CARVEDILOL. [Concomitant]
     Active Substance: CARVEDILOL
     Indication: PRODUCT USED FOR UNKNOWN INDICATION
     Dosage: 25 MILLIGRAM
     Route: 065
     Dates: start: 20180516
  31. CEFIXIME. [Concomitant]
     Active Substance: CEFIXIME
     Indication: PRODUCT USED FOR UNKNOWN INDICATION
     Dosage: 200 MILLIGRAM
     Route: 065
     Dates: start: 20180808, end: 20180812
  32. CHLORPHENAMINE [Concomitant]
     Active Substance: CHLORPHENIRAMINE MALEATE
     Indication: PRODUCT USED FOR UNKNOWN INDICATION
     Dosage: 4 MILLIGRAM
     Route: 065
     Dates: start: 20180516, end: 20180516
  33. FAMOTIDINE. [Concomitant]
     Active Substance: FAMOTIDINE
     Dosage: 20 MILLIGRAM
     Route: 065
     Dates: start: 20180706, end: 20180706
  34. FLUOROURACIL. [Concomitant]
     Active Substance: FLUOROURACIL
     Dosage: 1920 MILLIGRAM
     Route: 065
     Dates: start: 20180807
  35. FLUOROURACIL. [Concomitant]
     Active Substance: FLUOROURACIL
     Dosage: 2240 MILLIGRAM
     Route: 065
     Dates: start: 20180607
  36. HYDROCORTISONE. [Concomitant]
     Active Substance: HYDROCORTISONE
     Dosage: 100 MILLIGRAM
     Route: 065
     Dates: start: 20180807, end: 20180807
  37. IRINOTECAN [Concomitant]
     Active Substance: IRINOTECAN
     Dosage: 144 MILLIGRAM
     Route: 065
     Dates: start: 20180621
  38. IRINOTECAN [Concomitant]
     Active Substance: IRINOTECAN
     Dosage: 144 MILLIGRAM
     Route: 065
     Dates: start: 20180721
  39. PARACETAMOL A [Concomitant]
     Active Substance: ACETAMINOPHEN
     Indication: PRODUCT USED FOR UNKNOWN INDICATION
     Dosage: 1300 MILLIGRAM
     Route: 065
     Dates: start: 20180516, end: 20180516
  40. URSODEOXYCHOLIC ACID [Concomitant]
     Active Substance: URSODIOL
     Indication: PRODUCT USED FOR UNKNOWN INDICATION
     Dosage: 400 UNK
     Route: 065
     Dates: start: 20180516, end: 20180517
  41. ACETYLCYSTEINE. [Concomitant]
     Active Substance: ACETYLCYSTEINE
     Indication: PRODUCT USED FOR UNKNOWN INDICATION
     Dosage: 1200 MILLIGRAM
     Dates: start: 20180721, end: 20180723
  42. APREPITANT. [Concomitant]
     Active Substance: APREPITANT
     Indication: PRODUCT USED FOR UNKNOWN INDICATION
     Dosage: 150 MILLIGRAM
     Dates: start: 20180607, end: 20180607
  43. APREPITANT. [Concomitant]
     Active Substance: APREPITANT
     Dosage: 150 MILLIGRAM
     Dates: start: 20180706, end: 20180706
  44. APREPITANT. [Concomitant]
     Active Substance: APREPITANT
     Dosage: 150 MILLIGRAM
     Dates: start: 20180807, end: 20180807
  45. ATROPINE. [Concomitant]
     Active Substance: ATROPINE
     Indication: PRODUCT USED FOR UNKNOWN INDICATION
     Dosage: 0.5 MILLIGRAM
     Dates: start: 20180516, end: 20180516
  46. ATROPINE. [Concomitant]
     Active Substance: ATROPINE
     Dosage: 0.5 MILLIGRAM
     Dates: start: 20080807, end: 20180807
  47. CALCIUM FOLINATE [Concomitant]
     Active Substance: LEUCOVORIN CALCIUM
     Indication: PRODUCT USED FOR UNKNOWN INDICATION
     Dosage: 200 MILLIGRAM
     Dates: start: 20180516
  48. CALCIUM FOLINATE [Concomitant]
     Active Substance: LEUCOVORIN CALCIUM
     Dosage: 160 MILLIGRAM
     Dates: start: 20180607
  49. CALCIUM FOLINATE [Concomitant]
     Active Substance: LEUCOVORIN CALCIUM
     Dosage: 200 MILLIGRAM
     Dates: start: 20180823
  50. CEFTRIAXONE. [Concomitant]
     Active Substance: CEFTRIAXONE
     Indication: PRODUCT USED FOR UNKNOWN INDICATION
     Dosage: 2 UNK
     Dates: start: 20180516, end: 20180519
  51. CHLORPHENAMINE [Concomitant]
     Active Substance: CHLORPHENIRAMINE MALEATE
     Dosage: 4 MILLIGRAM
     Route: 065
     Dates: start: 20180807, end: 20180807
  52. CIMETIDINE [Concomitant]
     Active Substance: CIMETIDINE
     Dosage: 200 MILLIGRAM
     Dates: start: 20180621, end: 20180621
  53. FAMOTIDINE. [Concomitant]
     Active Substance: FAMOTIDINE
     Dosage: 20 MILLIGRAM
     Route: 065
     Dates: start: 20180823, end: 20180823
  54. IRINOTECAN [Concomitant]
     Active Substance: IRINOTECAN
     Dosage: 126 MILLIGRAM
     Route: 065
     Dates: start: 20180907
  55. LEVODROPROPIZINE [Concomitant]
     Active Substance: LEVODROPROPIZINE
     Indication: PRODUCT USED FOR UNKNOWN INDICATION
     Dosage: 180 MILLIGRAM
     Route: 065
     Dates: start: 20180622, end: 20180624
  56. NIFEDIPINE. [Concomitant]
     Active Substance: NIFEDIPINE
     Indication: PRODUCT USED FOR UNKNOWN INDICATION
     Dosage: 5 MILLIGRAM
     Route: 065
     Dates: start: 20180722, end: 20180722
  57. TRAMADOL PARACETAMOL CINFA [Concomitant]
     Indication: PRODUCT USED FOR UNKNOWN INDICATION
     Dosage: 2 DOSAGE FORM
     Route: 065
     Dates: start: 20180531, end: 20180602
  58. FILGRASTIM [Suspect]
     Active Substance: FILGRASTIM
     Indication: PRODUCT USED FOR UNKNOWN INDICATION
     Dosage: 300 UNK
     Route: 065
     Dates: start: 20180531, end: 20180531
  59. AFLIBERCEPT [Concomitant]
     Active Substance: AFLIBERCEPT
     Dosage: 238 UNK
     Dates: start: 20180607
  60. AFLIBERCEPT [Concomitant]
     Active Substance: AFLIBERCEPT
     Dosage: 239 UNK
     Dates: start: 20180706
  61. AFLIBERCEPT [Concomitant]
     Active Substance: AFLIBERCEPT
     Dosage: 232.4 UNK
     Dates: start: 20180823
  62. APREPITANT. [Concomitant]
     Active Substance: APREPITANT
     Dosage: 150 MILLIGRAM
     Dates: start: 20180621, end: 20180621
  63. ATROPINE. [Concomitant]
     Active Substance: ATROPINE
     Dosage: 0.5 MILLIGRAM
     Dates: start: 20180706, end: 20180706
  64. ATROPINE. [Concomitant]
     Active Substance: ATROPINE
     Dosage: 0.5 MILLIGRAM
     Dates: start: 20180907, end: 20180907
  65. CALCIUM FOLINATE [Concomitant]
     Active Substance: LEUCOVORIN CALCIUM
     Dosage: 200 MILLIGRAM
     Dates: start: 20180807
  66. CHLORPHENAMINE [Concomitant]
     Active Substance: CHLORPHENIRAMINE MALEATE
     Dosage: 4 MILLIGRAM
     Route: 065
     Dates: start: 20180621, end: 20180621
  67. FLUOROURACIL. [Concomitant]
     Active Substance: FLUOROURACIL
     Dosage: 1920 MILLIGRAM
     Route: 065
     Dates: start: 20180706
  68. HYDROCORTISONE. [Concomitant]
     Active Substance: HYDROCORTISONE
     Indication: PRODUCT USED FOR UNKNOWN INDICATION
     Dosage: 100 MILLIGRAM
     Route: 065
     Dates: start: 20180516, end: 20180516
  69. HYDROCORTISONE. [Concomitant]
     Active Substance: HYDROCORTISONE
     Dosage: 100 MILLIGRAM
     Route: 065
     Dates: start: 20180907, end: 20180907
  70. IRINOTECAN [Concomitant]
     Active Substance: IRINOTECAN
     Dosage: 144 MILLIGRAM
     Route: 065
     Dates: start: 20180706
  71. IRINOTECAN [Concomitant]
     Active Substance: IRINOTECAN
     Dosage: 144 MILLIGRAM
     Route: 065
     Dates: start: 20180823
  72. AFLIBERCEPT [Concomitant]
     Active Substance: AFLIBERCEPT
     Indication: PRODUCT USED FOR UNKNOWN INDICATION
     Dosage: 244.4 UNK
     Dates: start: 20180516
  73. AFLIBERCEPT [Concomitant]
     Active Substance: AFLIBERCEPT
     Dosage: 241 UNK
     Dates: start: 20180621
  74. AFLIBERCEPT [Concomitant]
     Active Substance: AFLIBERCEPT
     Dosage: 234.8 UNK
     Dates: start: 20180721
  75. APREPITANT. [Concomitant]
     Active Substance: APREPITANT
     Dosage: 150 MILLIGRAM
     Dates: start: 20180907, end: 20180907
  76. ATROPINE. [Concomitant]
     Active Substance: ATROPINE
     Dosage: 0.5 MILLIGRAM
     Dates: start: 20180607, end: 20180607
  77. CALCIUM FOLINATE [Concomitant]
     Active Substance: LEUCOVORIN CALCIUM
     Dosage: 200 MILLIGRAM
     Dates: start: 20180721
  78. FAMOTIDINE. [Concomitant]
     Active Substance: FAMOTIDINE
     Dosage: 20 MILLIGRAM
     Route: 065
     Dates: start: 20180621, end: 20180621
  79. FAMOTIDINE. [Concomitant]
     Active Substance: FAMOTIDINE
     Dosage: 20 MILLIGRAM
     Route: 065
     Dates: start: 20180721, end: 20180721
  80. FAMOTIDINE. [Concomitant]
     Active Substance: FAMOTIDINE
     Dosage: 20 MILLIGRAM
     Route: 065
     Dates: start: 20180807, end: 20180807
  81. FLUOROURACIL. [Concomitant]
     Active Substance: FLUOROURACIL
     Dosage: 1920 MILLIGRAM
     Route: 065
     Dates: start: 20180823
  82. HYDROCORTISONE. [Concomitant]
     Active Substance: HYDROCORTISONE
     Dosage: 100 MILLIGRAM
     Route: 065
     Dates: start: 20180823, end: 20180823
  83. PALONOSETRON. [Concomitant]
     Active Substance: PALONOSETRON HYDROCHLORIDE
     Indication: PRODUCT USED FOR UNKNOWN INDICATION
     Dosage: 0.25 MILLIGRAM
     Route: 065
     Dates: start: 20180516, end: 20180516
  84. APREPITANT. [Concomitant]
     Active Substance: APREPITANT
     Dosage: 150 MILLIGRAM
     Dates: start: 20180721, end: 20180721
  85. ATROPINE. [Concomitant]
     Active Substance: ATROPINE
     Dosage: 0.5 MILLIGRAM
     Dates: start: 20180621, end: 20180621
  86. CALCIUM FOLINATE [Concomitant]
     Active Substance: LEUCOVORIN CALCIUM
     Dosage: 200 MILLIGRAM
     Dates: start: 20180907
  87. CHLORPHENAMINE [Concomitant]
     Active Substance: CHLORPHENIRAMINE MALEATE
     Dosage: 4 MILLIGRAM
     Route: 065
     Dates: start: 20180706, end: 20180706
  88. CHLORPHENAMINE [Concomitant]
     Active Substance: CHLORPHENIRAMINE MALEATE
     Dosage: 4 MILLIGRAM
     Route: 065
     Dates: start: 20180823, end: 20180823
  89. CHLORPHENAMINE [Concomitant]
     Active Substance: CHLORPHENIRAMINE MALEATE
     Dosage: 4 MILLIGRAM
     Route: 065
     Dates: start: 20180907, end: 20180907
  90. CIMETIDINE [Concomitant]
     Active Substance: CIMETIDINE
     Dosage: 200 MILLIGRAM
     Dates: start: 20180607, end: 20180607
  91. FLUOROURACIL. [Concomitant]
     Active Substance: FLUOROURACIL
     Indication: PRODUCT USED FOR UNKNOWN INDICATION
     Dosage: 1600 MILLIGRAM
     Route: 065
     Dates: start: 20180516
  92. FLUOROURACIL. [Concomitant]
     Active Substance: FLUOROURACIL
     Dosage: 1920 MILLIGRAM
     Route: 065
     Dates: start: 20180721
  93. HYDROCORTISONE. [Concomitant]
     Active Substance: HYDROCORTISONE
     Dosage: 100 MILLIGRAM
     Route: 065
     Dates: start: 20180706, end: 20180706
  94. IRINOTECAN [Concomitant]
     Active Substance: IRINOTECAN
     Dosage: 144 MILLIGRAM
     Route: 065
     Dates: start: 20180807
  95. IRINOTECAN [Concomitant]
     Active Substance: IRINOTECAN
     Dosage: 180 MILLIGRAM
     Route: 065
     Dates: start: 20180516
  96. LOPERAMIDE [Concomitant]
     Active Substance: LOPERAMIDE
     Indication: PRODUCT USED FOR UNKNOWN INDICATION
     Dosage: 12 MILLIGRAM
     Route: 065
     Dates: start: 20180518, end: 20180531

REACTIONS (9)
  - Stomatitis [Recovered/Resolved]
  - Alopecia [Recovering/Resolving]
  - Neutropenia [Recovered/Resolved]
  - Headache [Recovered/Resolved]
  - Flank pain [Recovered/Resolved]
  - Mucosal inflammation [Recovered/Resolved]
  - Arthralgia [Recovering/Resolving]
  - Nausea [Recovered/Resolved]
  - Diarrhoea [Recovered/Resolved]

NARRATIVE: CASE EVENT DATE: 20180531
